FAERS Safety Report 11595897 (Version 1)
Quarter: 2015Q4

REPORT INFORMATION
  Report Type: Spontaneous
  Country: CH (occurrence: None)
  Receive Date: 20151002
  Receipt Date: 20151002
  Transmission Date: 20160304
  Serious: Yes (Hospitalization)
  Sender: FDA-Public Use
  Company Number: 2015PL000205

PATIENT
  Age: 51 Year
  Sex: Female

DRUGS (3)
  1. CANDESARTAN [Concomitant]
     Active Substance: CANDESARTAN
  2. ALLOPURINOL (ALLOPURINOL) TABLET [Suspect]
     Active Substance: ALLOPURINOL
     Indication: HYPERURICAEMIA
  3. TORASEMID (TORASEMIDE) [Concomitant]
     Active Substance: TORSEMIDE

REACTIONS (2)
  - Drug reaction with eosinophilia and systemic symptoms [None]
  - Electrocardiogram abnormal [None]
